FAERS Safety Report 9931386 (Version 2)
Quarter: 2014Q1

REPORT INFORMATION
  Report Type: Spontaneous
  Country: US (occurrence: US)
  Receive Date: 20140228
  Receipt Date: 20140228
  Transmission Date: 20141002
  Serious: Yes (Hospitalization)
  Sender: FDA-Public Use
  Company Number: 2008BI011673

PATIENT
  Age: 44 Year
  Sex: Female
  Weight: 71 kg

DRUGS (1)
  1. TYSABRI [Suspect]
     Indication: CROHN^S DISEASE
     Route: 042
     Dates: start: 200804, end: 20080502

REACTIONS (1)
  - Anaphylactic reaction [Recovered/Resolved]
